FAERS Safety Report 24074588 (Version 5)
Quarter: 2024Q3

REPORT INFORMATION
  Report Type: Spontaneous
  Country: US (occurrence: US)
  Receive Date: 20240710
  Receipt Date: 20240809
  Transmission Date: 20241016
  Serious: No
  Sender: TORRENT
  Company Number: US-TORRENT-00013665

PATIENT
  Age: 85 Year
  Sex: Female
  Weight: 54 kg

DRUGS (4)
  1. NYSTATIN [Suspect]
     Active Substance: NYSTATIN
     Indication: Fungal skin infection
     Dosage: 100,000 UNITS/GRAM
     Route: 065
     Dates: end: 202405
  2. TRIAMCINOLONE [Suspect]
     Active Substance: TRIAMCINOLONE
     Indication: Fungal skin infection
     Dosage: UNKNOWN
     Route: 065
  3. ELIQUIS [Concomitant]
     Active Substance: APIXABAN
     Indication: Product used for unknown indication
     Dosage: TWICE A DAY FOR ACID
     Route: 048
  4. METHIMAZOLE [Concomitant]
     Active Substance: METHIMAZOLE
     Indication: Hyperthyroidism
     Dosage: ONCE A DAY
     Route: 065

REACTIONS (2)
  - Drug ineffective [Unknown]
  - Product dosage form issue [Unknown]
